FAERS Safety Report 16908479 (Version 3)
Quarter: 2021Q2

REPORT INFORMATION
  Report Type: Spontaneous
  Country: FR (occurrence: FR)
  Receive Date: 20191011
  Receipt Date: 20210423
  Transmission Date: 20210716
  Serious: Yes (Death, Other)
  Sender: FDA-Public Use
  Company Number: FR-PFIZER INC-2019435672

PATIENT
  Age: 66 Year
  Sex: Female
  Weight: 50 kg

DRUGS (22)
  1. PHOSPHONEUROS [Concomitant]
     Active Substance: CALCIUM PHOSPHATE, DIBASIC, ANHYDROUS\MAGNESIUM GLYCEROPHOSPHATE\PHOSPHORIC ACID\SODIUM PHOSPHATE, DIBASIC
     Dosage: UNK
  2. VOGALENE [Concomitant]
     Active Substance: METOPIMAZINE
     Dosage: UNK
  3. TIORFAN [Concomitant]
     Active Substance: RACECADOTRIL
     Dosage: UNK
  4. SALBUTAMOL [Concomitant]
     Active Substance: ALBUTEROL
     Dosage: UNK
  5. MAG 2 [MAGNESIUM PIDOLATE] [Concomitant]
     Active Substance: MAGNESIUM PIDOLATE
     Dosage: UNK
  6. PARACETAMOL [Concomitant]
     Active Substance: ACETAMINOPHEN
     Dosage: UNK
  7. TRANSIPEG [MACROGOL] [Concomitant]
     Active Substance: POLYETHYLENE GLYCOLS
     Dosage: UNK
  8. KARDEGIC [Concomitant]
     Active Substance: ASPIRIN DL-LYSINE
     Dosage: UNK
  9. SMECTA [Concomitant]
     Active Substance: MONTMORILLONITE
     Dosage: UNK
  10. DUROGESIC [Concomitant]
     Active Substance: FENTANYL
     Dosage: UNK
  11. SERESTA [Concomitant]
     Active Substance: OXAZEPAM
     Dosage: UNK
  12. CEFEPIME [Suspect]
     Active Substance: CEFEPIME HYDROCHLORIDE
     Indication: SEPSIS
     Dosage: 6 G, DAILY
     Route: 042
     Dates: start: 20190731, end: 20190820
  13. CUBICIN [Suspect]
     Active Substance: DAPTOMYCIN
     Indication: SEPSIS
     Dosage: 500 MG, EVERY 48 HOURS
     Route: 042
     Dates: start: 20190806, end: 20190820
  14. NORMACOL [RHAMNUS FRANGULA BARK;STERCULIA URENS] [Concomitant]
     Active Substance: FRANGULA ALNUS BARK\HERBALS\KARAYA GUM
     Dosage: UNK
  15. BISOPROLOL FUMERATE [Concomitant]
     Active Substance: BISOPROLOL FUMARATE
     Dosage: UNK
  16. SPIRONOLACTONE. [Concomitant]
     Active Substance: SPIRONOLACTONE
     Dosage: UNK
  17. BETNEVAL [Concomitant]
     Active Substance: BETAMETHASONE VALERATE
     Dosage: UNK
  18. FUROSEMIDE. [Concomitant]
     Active Substance: FUROSEMIDE
     Dosage: UNK
  19. CLINDAMYCIN HCL [Suspect]
     Active Substance: CLINDAMYCIN HYDROCHLORIDE
     Indication: SEPSIS
     Dosage: 1800 MG, DAILY
     Route: 048
     Dates: start: 20190806, end: 20190820
  20. IMOVANE [Concomitant]
     Active Substance: ZOPICLONE
     Dosage: UNK
  21. STAGID [Concomitant]
     Active Substance: METFORMIN PAMOATE
     Dosage: UNK
  22. LOPERAMIDE HYDROCHLORIDE. [Concomitant]
     Active Substance: LOPERAMIDE HYDROCHLORIDE
     Dosage: UNK

REACTIONS (4)
  - Acute kidney injury [Fatal]
  - Pneumonia [Fatal]
  - Rhabdomyolysis [Fatal]
  - Encephalopathy [Recovered/Resolved]

NARRATIVE: CASE EVENT DATE: 20190819
